FAERS Safety Report 12181957 (Version 4)
Quarter: 2016Q2

REPORT INFORMATION
  Report Type: Spontaneous
  Country: US (occurrence: US)
  Receive Date: 20160315
  Receipt Date: 20160601
  Transmission Date: 20160815
  Serious: Yes (Hospitalization)
  Sender: FDA-Public Use
  Company Number: US-ACTELION-A-NJ2016-132689

PATIENT
  Age: 33 Year
  Sex: Female

DRUGS (3)
  1. RIOCIGUAT [Concomitant]
     Active Substance: RIOCIGUAT
  2. LETAIRIS [Concomitant]
     Active Substance: AMBRISENTAN
  3. VELETRI [Suspect]
     Active Substance: EPOPROSTENOL
     Indication: PULMONARY HYPERTENSION
     Dosage: 20.8 NG/KG, PER MIN
     Route: 042
     Dates: start: 20150416

REACTIONS (3)
  - Cardiac failure [Unknown]
  - Pulmonary hypertension [Unknown]
  - Cardiac failure congestive [Unknown]
